FAERS Safety Report 6778360 (Version 4)
Quarter: 2013Q2

REPORT INFORMATION
  Report Type: Spontaneous
  Country: US (occurrence: US)
  Receive Date: 20081003
  Receipt Date: 20130521
  Transmission Date: 20140414
  Serious: Yes (Other)
  Sender: FDA-Public Use
  Company Number: US-BAXTER-2008BH010026

PATIENT
  Sex: Female

DRUGS (32)
  1. GAMMAGARD S/D [Suspect]
     Indication: POLYMYOSITIS
     Route: 042
     Dates: start: 20080107
  2. GAMMAGARD S/D [Suspect]
     Indication: OFF LABEL USE
     Route: 042
     Dates: start: 20080215
  3. GAMMAGARD S/D [Suspect]
     Route: 042
     Dates: start: 20080402, end: 20080404
  4. GAMMAGARD S/D [Suspect]
     Route: 042
     Dates: start: 20080605, end: 20080606
  5. GAMMAGARD S/D [Suspect]
     Dates: start: 20070701
  6. GAMMAGARD S/D [Suspect]
     Dates: start: 20070718, end: 20070721
  7. GAMMAGARD LIQUID [Suspect]
     Indication: POLYMYOSITIS
     Dates: start: 20070701
  8. GAMMAGARD LIQUID [Suspect]
     Indication: OFF LABEL USE
     Dates: start: 20070718, end: 20070721
  9. GAMMAGARD LIQUID [Suspect]
     Dates: start: 20080107
  10. GAMMAGARD LIQUID [Suspect]
     Dates: start: 20080215
  11. GAMMAGARD LIQUID [Suspect]
     Dates: start: 20080402, end: 20080404
  12. GAMMAGARD LIQUID [Suspect]
     Dates: start: 20080605, end: 20080606
  13. VENOGLOBULIN [Suspect]
     Indication: PRODUCT USED FOR UNKNOWN INDICATION
     Dates: start: 20030630
  14. VENOGLOBULIN [Suspect]
     Dates: start: 20030701, end: 20030702
  15. VENOGLOBULIN [Suspect]
     Dates: start: 20030731
  16. VENOGLOBULIN [Suspect]
     Dates: start: 20030811, end: 20030813
  17. VENOGLOBULIN [Suspect]
     Dates: start: 20030905
  18. VENOGLOBULIN [Suspect]
     Dates: start: 20030908, end: 20030910
  19. VENOGLOBULIN [Suspect]
     Dates: start: 20030922
  20. VENOGLOBULIN [Suspect]
     Dates: start: 20031007, end: 20031008
  21. VENOGLOBULIN [Suspect]
     Dates: start: 20031106
  22. VENOGLOBULIN [Suspect]
     Dates: start: 20031110, end: 20031112
  23. CARIMUNE MF [Suspect]
     Indication: PRODUCT USED FOR UNKNOWN INDICATION
     Dates: start: 20070321, end: 20070324
  24. PANGLOBULIN [Suspect]
     Indication: PRODUCT USED FOR UNKNOWN INDICATION
     Dates: start: 20070321, end: 20070324
  25. GAMMAR [Suspect]
     Indication: PRODUCT USED FOR UNKNOWN INDICATION
     Dates: start: 20031007, end: 20031008
  26. GAMMAR [Suspect]
     Dates: start: 20031111, end: 20031112
  27. GAMMAR [Suspect]
     Dates: start: 20031114
  28. GAMMAR [Suspect]
     Dates: start: 20031222
  29. GAMMAR [Suspect]
     Dates: start: 20040928, end: 20040930
  30. GAMMAR [Suspect]
     Dates: start: 20041027, end: 20041029
  31. GAMMAR [Suspect]
     Dates: start: 20041221, end: 20041223
  32. IMURAN [Concomitant]
     Indication: PRODUCT USED FOR UNKNOWN INDICATION
     Route: 065

REACTIONS (4)
  - Hepatitis C [Unknown]
  - Neurogenic shock [Unknown]
  - Internal injury [Unknown]
  - Pain [Unknown]
